FAERS Safety Report 23950303 (Version 6)
Quarter: 2025Q1

REPORT INFORMATION
  Report Type: Report from Study
  Country: GB (occurrence: GB)
  Receive Date: 20240607
  Receipt Date: 20250210
  Transmission Date: 20250408
  Serious: Yes (Other)
  Sender: TAKEDA
  Company Number: GB-TAKEDA-2023TUS054463

PATIENT
  Sex: Female

DRUGS (3)
  1. VEDOLIZUMAB [Suspect]
     Active Substance: VEDOLIZUMAB
     Indication: Colitis ulcerative
  2. VEDOLIZUMAB [Suspect]
     Active Substance: VEDOLIZUMAB
     Indication: Colitis ulcerative
     Dosage: 108 MILLIGRAM, Q2WEEKS
  3. VEDOLIZUMAB [Suspect]
     Active Substance: VEDOLIZUMAB

REACTIONS (14)
  - Haematochezia [Unknown]
  - Infected cyst [Unknown]
  - Injection site extravasation [Unknown]
  - Product storage error [Unknown]
  - Mental disorder [Unknown]
  - Injection site pain [Unknown]
  - Product dose omission issue [Unknown]
  - Mucous stools [Unknown]
  - Lip swelling [Unknown]
  - Mass [Unknown]
  - Pregnancy [Unknown]
  - Inappropriate schedule of product administration [Unknown]
  - Erythema [Not Recovered/Not Resolved]
  - Pruritus [Not Recovered/Not Resolved]
